FAERS Safety Report 5450330-X (Version None)
Quarter: 2007Q3

REPORT INFORMATION
  Report Type: 
  Country: None (occurrence: None)
  Receive Date: 20070912
  Receipt Date: 20070904
  Transmission Date: 20080115
  Serious: Yes (Disabling, Other)
  Sender: FDA-Public Use
  Company Number: FR-PFIZER INC-2007062793

PATIENT
  Sex: Female
  Weight: 74 kg

DRUGS (4)
  1. TAHOR [Suspect]
     Dates: start: 20051110, end: 20070330
  2. TAREG [Concomitant]
  3. LEVOTHYROX [Concomitant]
     Dosage: DAILY DOSE:175MCG-TEXT:25 UG AND 150 UG
  4. ZOLPIDEM TARTRATE [Concomitant]
     Dosage: DAILY DOSE:10MG-FREQ:DAILY

REACTIONS (4)
  - BLOOD CREATINE PHOSPHOKINASE INCREASED [None]
  - DRUG TOXICITY [None]
  - MUSCLE DISORDER [None]
  - RHABDOMYOLYSIS [None]
